FAERS Safety Report 20619134 (Version 7)
Quarter: 2023Q4

REPORT INFORMATION
  Report Type: Report from Study
  Country: US (occurrence: US)
  Receive Date: 20220322
  Receipt Date: 20231004
  Transmission Date: 20240110
  Serious: Yes (Hospitalization, Other)
  Sender: FDA-Public Use
  Company Number: US-ACADIA PHARMACEUTICALS INC.-ACA-2022-PIM-000715

PATIENT
  Age: 88 Year
  Sex: Male
  Weight: 63 kg

DRUGS (26)
  1. NUPLAZID [Suspect]
     Active Substance: PIMAVANSERIN TARTRATE
     Indication: Parkinson^s disease psychosis
     Dosage: 34 MILLIGRAM, QD
     Route: 048
     Dates: start: 202108
  2. NUPLAZID [Suspect]
     Active Substance: PIMAVANSERIN TARTRATE
     Indication: Hallucination
     Dosage: 34 MILLIGRAM, QD
     Route: 048
     Dates: start: 20210910
  3. NUPLAZID [Suspect]
     Active Substance: PIMAVANSERIN TARTRATE
     Indication: Delusion
     Dosage: 34 MILLIGRAM, QD
     Route: 048
  4. NUPLAZID [Suspect]
     Active Substance: PIMAVANSERIN TARTRATE
     Dosage: 34 MILLIGRAM, QD
     Route: 048
  5. ASPIRIN [Concomitant]
     Active Substance: ASPIRIN
     Dosage: 81 MILLIGRAM EC
  6. ATROPINE SULFATE [Concomitant]
     Active Substance: ATROPINE SULFATE
     Dosage: 0.1% OP
     Route: 047
  7. VITAMIN B COMPLEX [Concomitant]
     Active Substance: CYANOCOBALAMIN\DEXPANTHENOL\NIACINAMIDE\PYRIDOXINE HYDROCHLORIDE\RIBOFLAVIN 5^-PHOSPHATE SODIUM\THIA
     Dosage: DAILY
     Route: 048
  8. CARBIDOPA [Concomitant]
     Active Substance: CARBIDOPA
     Dosage: 25 MILLIGRAM
  9. LEVODOPA [Concomitant]
     Active Substance: LEVODOPA
  10. MODAFINIL [Concomitant]
     Active Substance: MODAFINIL
     Dosage: 200 MILLIGRAM
  11. PRAMIPEXOLE [Concomitant]
     Active Substance: PRAMIPEXOLE
     Dosage: 0.125 MILLIGRAM
  12. VITAMIN D3 [Concomitant]
     Active Substance: CHOLECALCIFEROL
     Dosage: 25 MICROGRAM
     Dates: start: 20131009
  13. VITAMIN D3 [Concomitant]
     Active Substance: CHOLECALCIFEROL
     Dosage: 1000 UNIT
  14. MEMANTINE [Concomitant]
     Active Substance: MEMANTINE
     Dosage: 5 MILLIGRAM, TWICE A DAY
     Route: 048
  15. DUTASTERIDE [Concomitant]
     Active Substance: DUTASTERIDE
     Dosage: 0.5 MG
  16. ELIQUIS [Concomitant]
     Active Substance: APIXABAN
     Indication: Pulmonary thrombosis
     Dosage: 5 MILLIGRAM, TWO TIMES DAILY
     Route: 048
     Dates: start: 20230808
  17. PROSCAR [Concomitant]
     Active Substance: FINASTERIDE
     Indication: Prostatomegaly
     Dosage: 5 MILLIGRAM, DAILY
     Route: 048
     Dates: start: 20230809
  18. PERI-COLACE [DOCUSATE SODIUM;SENNOSIDE A+B] [Concomitant]
     Indication: Constipation
     Dosage: 8.6 TO 50 MG, 2 TIMES DAILY, PRN
     Route: 048
     Dates: start: 20230808
  19. COENZYME Q10 [Concomitant]
     Active Substance: DIETARY SUPPLEMENT\UBIDECARENONE
     Dosage: 100 MILLIGRAM, 2 TIMES EVERYDAY
     Route: 048
     Dates: start: 20141205
  20. CARBIDOPA\LEVODOPA [Concomitant]
     Active Substance: CARBIDOPA\LEVODOPA
     Indication: Parkinson^s disease
     Dosage: 25-100 MG, 0.5 TABLET, 4 TIMES DAILY
     Route: 048
     Dates: start: 20230427
  21. MINERALS\VITAMINS [Concomitant]
     Active Substance: MINERALS\VITAMINS
     Dosage: 18-400MG, 1 TABLET, DAILY
     Route: 048
     Dates: start: 20220511
  22. ZETIA [Concomitant]
     Active Substance: EZETIMIBE
     Dosage: 10 MILLIGRAM, 1 TABLET EVERYDAY
     Route: 048
     Dates: start: 20221127
  23. SYNTHROID [Concomitant]
     Active Substance: LEVOTHYROXINE SODIUM
     Dosage: 25 MCG, DAILY
     Route: 048
     Dates: start: 20210504
  24. NITROSTAT [Concomitant]
     Active Substance: NITROGLYCERIN
     Indication: Chest pain
     Dosage: 0.4 MG, SUBLINGUAL, EVERY 5 MIN PRN
     Route: 060
     Dates: start: 20210803
  25. MIRAPEX [Concomitant]
     Active Substance: PRAMIPEXOLE DIHYDROCHLORIDE
     Indication: Restless legs syndrome
     Dosage: 1.5 MG, NIGHTLY
     Route: 048
     Dates: start: 20230106
  26. NAMENDA [Concomitant]
     Active Substance: MEMANTINE HYDROCHLORIDE
     Dosage: 5 MILLIGRAM, 1 TABLET TWICE A DAY
     Dates: start: 20230427

REACTIONS (12)
  - Pulmonary embolism [Recovered/Resolved]
  - Product dose omission issue [Unknown]
  - Nonspecific reaction [Unknown]
  - Product dose omission issue [Not Recovered/Not Resolved]
  - Urinary tract infection [Unknown]
  - Fatigue [Not Recovered/Not Resolved]
  - Nonspecific reaction [Recovered/Resolved]
  - Hallucination [Not Recovered/Not Resolved]
  - Hallucination [Unknown]
  - Hallucination, visual [Not Recovered/Not Resolved]
  - Confusional state [Not Recovered/Not Resolved]
  - Hallucination [Not Recovered/Not Resolved]

NARRATIVE: CASE EVENT DATE: 20220117
